FAERS Safety Report 13762260 (Version 1)
Quarter: 2017Q3

REPORT INFORMATION
  Report Type: Spontaneous
  Country: US (occurrence: US)
  Receive Date: 20170717
  Receipt Date: 20170717
  Transmission Date: 20171127
  Serious: No
  Sender: FDA-Public Use
  Company Number: None

PATIENT
  Age: 38 Year
  Sex: Female
  Weight: 67.5 kg

DRUGS (1)
  1. BANANA BOAT SPORT PERFORMANCE [Suspect]
     Active Substance: AVOBENZONE\HOMOSALATE\OCTISALATE\OCTOCRYLENE\OXYBENZONE
     Indication: PROPHYLAXIS AGAINST SOLAR RADIATION
     Dosage: ?          OTHER STRENGTH:SPRAY;?
     Route: 061
     Dates: start: 20170716, end: 20170716

REACTIONS (2)
  - Sunburn [None]
  - Burns second degree [None]

NARRATIVE: CASE EVENT DATE: 20170716
